FAERS Safety Report 4876570-6 (Version None)
Quarter: 2005Q4

REPORT INFORMATION
  Report Type: 
  Country: None (occurrence: None)
  Receive Date: 20051206
  Receipt Date: 20050916
  Transmission Date: 20060501
  Serious: Yes (Hospitalization)
  Sender: FDA-Public Use
  Company Number: USA0508106926

PATIENT
  Age: 87 Year
  Sex: Female
  Weight: 69 kg

DRUGS (8)
  1. CYMBALTA [Suspect]
     Indication: NEUROPATHY
     Dosage: 30 MG
     Dates: start: 20050606
  2. FOSAMAX [Concomitant]
  3. CALCIUM D [Concomitant]
  4. LEVOXYL [Concomitant]
  5. DILANTIN [Concomitant]
  6. ASPIRIN [Concomitant]
  7. M.V.I. [Concomitant]
  8. VESICARE [Concomitant]

REACTIONS (1)
  - BLOOD SODIUM DECREASED [None]
